FAERS Safety Report 7708630-6 (Version None)
Quarter: 2011Q3

REPORT INFORMATION
  Report Type: 
  Country: None (occurrence: None)
  Receive Date: 20110825
  Receipt Date: 20110812
  Transmission Date: 20111222
  Serious: No
  Sender: FDA-Public Use
  Company Number: US-B.I. PHARMACEUTICALS,INC./RIDGEFIELD-2011-BP-19940BP

PATIENT
  Sex: Male

DRUGS (5)
  1. VICODIN [Concomitant]
     Indication: ARTHRITIS
  2. MONOPRIL [Concomitant]
     Indication: HYPERTENSION
  3. PRADAXA [Suspect]
     Indication: ATRIAL FIBRILLATION
     Dosage: 300 MG
     Route: 048
     Dates: start: 20110801, end: 20110801
  4. INDERAL [Concomitant]
     Indication: HYPERTENSION
  5. TYLENOL-500 [Concomitant]
     Indication: ARTHRITIS

REACTIONS (3)
  - DIZZINESS [None]
  - NAUSEA [None]
  - ARTHRALGIA [None]
